FAERS Safety Report 12905441 (Version 5)
Quarter: 2017Q3

REPORT INFORMATION
  Report Type: Report from Study
  Country: JP (occurrence: JP)
  Receive Date: 20161103
  Receipt Date: 20170926
  Transmission Date: 20171127
  Serious: Yes (Death, Other)
  Sender: FDA-Public Use
  Company Number: JP-AMGEN-JPNCT2016153915

PATIENT
  Age: 72 Year
  Sex: Male
  Weight: 57 kg

DRUGS (37)
  1. ROMIPLOSTIM [Suspect]
     Active Substance: ROMIPLOSTIM
     Dosage: 2 MUG/KG, UNK
     Route: 058
     Dates: start: 20150729, end: 20150729
  2. PREDONINE [Suspect]
     Active Substance: PREDNISOLONE
     Dosage: 30 MG, UNK
     Route: 065
     Dates: start: 20150729, end: 20150802
  3. OMEPRAZOLE. [Concomitant]
     Active Substance: OMEPRAZOLE
     Indication: IMMUNE THROMBOCYTOPENIC PURPURA
     Dosage: 40 MG, UNK
     Route: 048
     Dates: start: 20150714, end: 20150720
  4. SAWACILLIN [Concomitant]
     Active Substance: AMOXICILLIN
     Indication: IMMUNE THROMBOCYTOPENIC PURPURA
     Dosage: 1500 MG, UNK
     Route: 048
     Dates: start: 20150714, end: 20150720
  5. VENOGLOBULIN IH [Concomitant]
     Active Substance: HUMAN IMMUNOGLOBULIN G
     Indication: IMMUNE THROMBOCYTOPENIC PURPURA
     Dosage: 20 G, UNK
     Route: 065
     Dates: start: 20150828, end: 20150828
  6. REVOLADE [Concomitant]
     Active Substance: ELTROMBOPAG
     Indication: IMMUNE THROMBOCYTOPENIC PURPURA
     Dosage: 12.5 MG, UNK
     Route: 048
     Dates: start: 20150901, end: 20150903
  7. ADONA [Concomitant]
     Active Substance: CARBAZOCHROME SODIUM SULFONATE
     Indication: IMMUNE THROMBOCYTOPENIC PURPURA
     Dosage: 100 MG, UNK
     Route: 048
     Dates: start: 20150710, end: 20150716
  8. ROMIPLOSTIM [Suspect]
     Active Substance: ROMIPLOSTIM
     Indication: IMMUNE THROMBOCYTOPENIC PURPURA
     Dosage: 1 MUG/KG, UNK
     Route: 058
     Dates: start: 20150722, end: 20150722
  9. ROMIPLOSTIM [Suspect]
     Active Substance: ROMIPLOSTIM
     Dosage: 4 MUG/KG, UNK
     Route: 058
     Dates: start: 20150812, end: 20150812
  10. ADONA [Concomitant]
     Active Substance: CARBAZOCHROME SODIUM SULFONATE
     Dosage: 90 MG, UNK
     Route: 048
     Dates: start: 20150915, end: 20150926
  11. RINDERON VG [Concomitant]
     Active Substance: BETAMETHASONE VALERATE\GENTAMICIN SULFATE
     Indication: URTICARIA
     Dosage: UNK
     Route: 061
  12. PROPETO [Concomitant]
     Indication: URTICARIA
     Dosage: UNK
     Route: 061
  13. ROMIPLOSTIM [Suspect]
     Active Substance: ROMIPLOSTIM
     Dosage: 3 MUG/KG, UNK
     Route: 058
     Dates: start: 20150805, end: 20150805
  14. ZOSYN [Suspect]
     Active Substance: PIPERACILLIN SODIUM\TAZOBACTAM SODIUM
     Indication: PYREXIA
     Dosage: UNK
     Route: 065
  15. SANDIMMUN [Concomitant]
     Active Substance: CYCLOSPORINE
     Indication: IMMUNE THROMBOCYTOPENIC PURPURA
     Dosage: 150 MG, UNK
     Route: 041
     Dates: start: 20150925, end: 20150926
  16. ADONA [Concomitant]
     Active Substance: CARBAZOCHROME SODIUM SULFONATE
     Dosage: 200 MG, UNK
     Route: 065
     Dates: start: 20150717, end: 20150807
  17. ADONA [Concomitant]
     Active Substance: CARBAZOCHROME SODIUM SULFONATE
     Dosage: 75 MG, UNK
     Route: 065
     Dates: start: 20150808, end: 20150906
  18. ROMIPLOSTIM [Suspect]
     Active Substance: ROMIPLOSTIM
     Dosage: 5 MUG/KG, UNK
     Route: 058
     Dates: start: 20150819, end: 20150819
  19. PREDONINE [Suspect]
     Active Substance: PREDNISOLONE
     Indication: IMMUNE THROMBOCYTOPENIC PURPURA
     Dosage: 60 MG, UNK
     Route: 065
     Dates: start: 20150710, end: 20150728
  20. REVOLADE [Concomitant]
     Active Substance: ELTROMBOPAG
     Dosage: 50 MG, UNK
     Route: 048
     Dates: start: 20150914, end: 20150927
  21. PREDONINE [Suspect]
     Active Substance: PREDNISOLONE
     Dosage: 20 MG, UNK
     Route: 048
     Dates: start: 20150803, end: 20150807
  22. ADONA [Concomitant]
     Active Substance: CARBAZOCHROME SODIUM SULFONATE
     Dosage: 25 MG, UNK
     Route: 065
     Dates: start: 20150907, end: 20150911
  23. ROMIPLOSTIM [Suspect]
     Active Substance: ROMIPLOSTIM
     Dosage: 6 MUG/KG, UNK
     Route: 058
     Dates: start: 20150826
  24. PREDONINE [Suspect]
     Active Substance: PREDNISOLONE
     Dosage: 10 MG, UNK
     Route: 048
     Dates: start: 20150808, end: 20150818
  25. PREDNISOLONE. [Suspect]
     Active Substance: PREDNISOLONE
     Dosage: 2.5 MG, UNK
     Route: 048
     Dates: start: 20150828, end: 20150915
  26. OMEPRAZOLE. [Concomitant]
     Active Substance: OMEPRAZOLE
     Indication: UPPER GASTROINTESTINAL HAEMORRHAGE
  27. MYSER [Concomitant]
     Active Substance: DIFLUPREDNATE
     Indication: URTICARIA
     Dosage: UNK
     Route: 061
  28. MAXIPIME [Suspect]
     Active Substance: CEFEPIME HYDROCHLORIDE
     Indication: PYREXIA
     Dosage: UNK
     Route: 065
     Dates: start: 20150821
  29. CANCIDAS [Suspect]
     Active Substance: CASPOFUNGIN ACETATE
     Indication: PYREXIA
     Dosage: UNK
     Route: 041
  30. PREDNISOLONE. [Suspect]
     Active Substance: PREDNISOLONE
     Indication: IMMUNE THROMBOCYTOPENIC PURPURA
     Dosage: 5 MG, UNK
     Route: 048
     Dates: start: 20150819, end: 20150827
  31. REVOLADE [Concomitant]
     Active Substance: ELTROMBOPAG
     Dosage: 37.5 MG, UNK
     Route: 048
     Dates: start: 20150908, end: 20150913
  32. VANCOMYCIN [Suspect]
     Active Substance: VANCOMYCIN
     Indication: PYREXIA
     Dosage: UNK
     Route: 065
  33. PREDNISOLONE. [Suspect]
     Active Substance: PREDNISOLONE
     Dosage: 17.5 MG, UNK
     Route: 048
     Dates: start: 20150916, end: 20150927
  34. CLARITHROMYCIN. [Concomitant]
     Active Substance: CLARITHROMYCIN
     Indication: IMMUNE THROMBOCYTOPENIC PURPURA
     Dosage: 800 MG, UNK
     Route: 048
     Dates: start: 20150714, end: 20150720
  35. VENOGLOBULIN IH [Concomitant]
     Active Substance: HUMAN IMMUNOGLOBULIN G
     Dosage: 20 G, UNK
     Route: 065
     Dates: start: 20150917, end: 20150918
  36. REVOLADE [Concomitant]
     Active Substance: ELTROMBOPAG
     Dosage: 25 MG, UNK
     Route: 048
     Dates: start: 20150904, end: 20150907
  37. SAHNE [Concomitant]
     Indication: URTICARIA
     Dosage: UNK
     Route: 061

REACTIONS (13)
  - Upper gastrointestinal haemorrhage [Not Recovered/Not Resolved]
  - Urticaria [Unknown]
  - Infection [Recovering/Resolving]
  - Shock haemorrhagic [Fatal]
  - Anaemia [Fatal]
  - Dry eye [Unknown]
  - Neutrophil count increased [Fatal]
  - White blood cell count increased [Not Recovered/Not Resolved]
  - Pleural effusion [Recovering/Resolving]
  - Gastrointestinal haemorrhage [Fatal]
  - Delirium [Unknown]
  - Pyrexia [Recovering/Resolving]
  - Hepatic function abnormal [Recovered/Resolved]

NARRATIVE: CASE EVENT DATE: 20150724
